FAERS Safety Report 6175962-5 (Version None)
Quarter: 2009Q2

REPORT INFORMATION
  Report Type: 
  Country: None (occurrence: None)
  Receive Date: 20090501
  Receipt Date: 20090421
  Transmission Date: 20091009
  Serious: Yes (Hospitalization)
  Sender: FDA-Public Use
  Company Number: DE-VALEANT-2009VX000677

PATIENT
  Age: 53 Year
  Sex: Female

DRUGS (1)
  1. TASMAR [Suspect]
     Route: 048
     Dates: start: 20090414, end: 20090414

REACTIONS (3)
  - DIARRHOEA [None]
  - INTENTIONAL OVERDOSE [None]
  - SUICIDE ATTEMPT [None]
